FAERS Safety Report 8218586-8 (Version None)
Quarter: 2012Q1

REPORT INFORMATION
  Report Type: 
  Country: None (occurrence: None)
  Receive Date: 20120319
  Receipt Date: 20120309
  Transmission Date: 20120608
  Serious: Yes (Other)
  Sender: FDA-Public Use
  Company Number: US-BAYER-2011-111181

PATIENT
  Age: 22 Year
  Sex: Female
  Weight: 68.027 kg

DRUGS (8)
  1. IBUPROFEN [Concomitant]
     Dosage: 600 MG, UNK
     Route: 048
     Dates: start: 20091201
  2. PROTONIX [Concomitant]
  3. FLUOXETINE HYDROCHLORIDE [Concomitant]
     Dosage: 20 MG, UNK
     Route: 048
     Dates: start: 20090918, end: 20100305
  4. FLEXERIL [Concomitant]
     Dosage: 10 MG, HS
     Route: 048
     Dates: start: 20100125
  5. TORADOL [Concomitant]
     Dosage: UNK
     Route: 048
     Dates: start: 20100125
  6. NEXIUM [Concomitant]
     Dosage: 40 MG, UNK
  7. YAZ [Suspect]
     Indication: MENSTRUATION IRREGULAR
     Dosage: UNK
     Route: 048
     Dates: start: 20090401, end: 20100801
  8. OMEPRAZOLE [Concomitant]
     Dosage: UNK
     Route: 048
     Dates: start: 20100107

REACTIONS (6)
  - ABDOMINAL PAIN UPPER [None]
  - CHOLECYSTITIS CHRONIC [None]
  - CHOLELITHIASIS [None]
  - INJURY [None]
  - COSTOCHONDRITIS [None]
  - CHEST PAIN [None]
